FAERS Safety Report 24067571 (Version 1)
Quarter: 2024Q3

REPORT INFORMATION
  Report Type: Report from Study
  Country: US (occurrence: US)
  Receive Date: 20240710
  Receipt Date: 20240710
  Transmission Date: 20241017
  Serious: Yes (Hospitalization)
  Sender: ABBVIE
  Company Number: US-ABBVIE-5829310

PATIENT

DRUGS (3)
  1. UBRELVY [Suspect]
     Active Substance: UBROGEPANT
     Indication: Maternal exposure timing unspecified
     Dosage: FORM STRENGTH: 100 MILLIGRAM
     Route: 064
  2. KEPPRA [Concomitant]
     Active Substance: LEVETIRACETAM
     Indication: Product used for unknown indication
     Dosage: TRIMESTER 1 (WEEK 1 TO 13), TRIMESTER 2 (WEEK 14 TO 27)
  3. PROPRANOLOL [Concomitant]
     Active Substance: PROPRANOLOL HYDROCHLORIDE
     Indication: Product used for unknown indication
     Dosage: TRIMESTER 1 (WEEK 1 TO 13), TRIMESTER 2 (WEEK 14 TO 27)

REACTIONS (2)
  - Foetal distress syndrome [Not Recovered/Not Resolved]
  - Foetal exposure during pregnancy [Unknown]

NARRATIVE: CASE EVENT DATE: 20240612
